FAERS Safety Report 10076443 (Version 1)
Quarter: 2014Q2

REPORT INFORMATION
  Report Type: Report from Study
  Country: US (occurrence: US)
  Receive Date: 20140414
  Receipt Date: 20140414
  Transmission Date: 20141212
  Serious: Yes (Other)
  Sender: FDA-Public Use
  Company Number: US-JNJFOC-20140406579

PATIENT
  Age: 63 Year
  Sex: Female
  Weight: 86.18 kg

DRUGS (14)
  1. REMICADE [Suspect]
     Indication: RHEUMATOID ARTHRITIS
     Route: 042
  2. REMICADE [Suspect]
     Indication: SARCOIDOSIS
     Route: 042
  3. FAMOTIDINE [Concomitant]
     Indication: DYSPEPSIA
     Route: 048
  4. VITAMIN C [Concomitant]
     Route: 065
  5. MULTIVITAMINS [Concomitant]
     Route: 065
  6. CALCIUM [Concomitant]
     Route: 065
  7. HYDROCHLOROTHIAZIDE [Concomitant]
     Indication: HYPERTENSION
     Route: 065
  8. LOSARTAN [Concomitant]
     Indication: HYPERTENSION
     Route: 065
  9. GABAPENTIN [Concomitant]
     Indication: PAIN
     Route: 065
     Dates: start: 20140324
  10. HYDROCODONE [Concomitant]
     Indication: PAIN
     Dosage: 7.32 AS NEEDED
     Route: 065
  11. FOLIC ACID [Concomitant]
     Indication: DRUG TOXICITY PROPHYLAXIS
     Route: 065
  12. METHOTREXATE [Concomitant]
     Indication: RHEUMATOID ARTHRITIS
     Route: 065
  13. NORVASC [Concomitant]
     Indication: DIURETIC THERAPY
     Route: 065
  14. NORVASC [Concomitant]
     Indication: BLOOD PRESSURE
     Route: 065

REACTIONS (4)
  - Blister [Not Recovered/Not Resolved]
  - Scab [Not Recovered/Not Resolved]
  - Pseudomonas infection [Not Recovered/Not Resolved]
  - Off label use [Unknown]
